FAERS Safety Report 10256204 (Version 2)
Quarter: 2014Q2

REPORT INFORMATION
  Report Type: Spontaneous
  Country: US (occurrence: US)
  Receive Date: 20140624
  Receipt Date: 20140624
  Transmission Date: 20141212
  Serious: No
  Sender: FDA-Public Use
  Company Number: US-ZOGENIX, INC.-2012ZX000104

PATIENT
  Age: 34 Year
  Sex: Female
  Weight: 71.73 kg

DRUGS (1)
  1. SUMAVEL DOSEPRO [Suspect]
     Dates: start: 20120311, end: 20120311

REACTIONS (5)
  - Injection site erythema [Not Recovered/Not Resolved]
  - Exposure during pregnancy [Unknown]
  - Device malfunction [Recovered/Resolved]
  - Drug administered at inappropriate site [Recovered/Resolved]
  - Accidental exposure to product [Recovered/Resolved]
